FAERS Safety Report 8611967-X (Version None)
Quarter: 2012Q3

REPORT INFORMATION
  Report Type: 
  Country: None (occurrence: None)
  Receive Date: 20120822
  Receipt Date: 20120813
  Transmission Date: 20120928
  Serious: Yes (Hospitalization)
  Sender: FDA-Public Use
  Company Number: US-GLAXOSMITHKLINE-A0752413A

PATIENT
  Age: 50 Year
  Sex: Female
  Weight: 150 kg

DRUGS (10)
  1. VASOTEC [Concomitant]
  2. PRILOSEC [Concomitant]
  3. LOVENOX [Concomitant]
  4. HYDROCODONE [Concomitant]
  5. CARISOPRODOL [Concomitant]
  6. AVANDIA [Suspect]
     Indication: DIABETES MELLITUS
     Dosage: 4MG PER DAY
     Route: 048
     Dates: start: 20031013, end: 20070505
  7. PROTONIX [Concomitant]
  8. AVANDAMET [Suspect]
     Indication: DIABETES MELLITUS
     Route: 048
     Dates: start: 20050801, end: 20051214
  9. AMARYL [Concomitant]
  10. ULTRAM [Concomitant]

REACTIONS (6)
  - CARDIAC FAILURE CONGESTIVE [None]
  - SYNCOPE [None]
  - PULMONARY EMBOLISM [None]
  - THROMBOSIS [None]
  - CARDIOMYOPATHY [None]
  - CORONARY ARTERY DISEASE [None]
